FAERS Safety Report 10170209 (Version 3)
Quarter: 2014Q3

REPORT INFORMATION
  Report Type: Report from Study
  Country: US (occurrence: US)
  Receive Date: 20140513
  Receipt Date: 20140922
  Transmission Date: 20150326
  Serious: Yes (Other)
  Sender: FDA-Public Use
  Company Number: US-MYLANLABS-2014S1010614

PATIENT
  Age: 30 Year
  Sex: Female

DRUGS (4)
  1. AMNESTEEM [Suspect]
     Active Substance: ISOTRETINOIN
     Dosage: 20 MG,QD
     Dates: end: 201404
  2. AMNESTEEM [Suspect]
     Active Substance: ISOTRETINOIN
     Dosage: 20 MG,QD
     Dates: start: 20131101, end: 201404
  3. CLARAVIS [Suspect]
     Active Substance: ISOTRETINOIN
     Dosage: UNK
  4. PLAN B [Concomitant]
     Active Substance: LEVONORGESTREL
     Dosage: UNK
     Dates: start: 20140509, end: 20140509

REACTIONS (3)
  - Exposure during pregnancy [Recovered/Resolved]
  - Abortion induced [Recovered/Resolved]
  - Abdominal pain [Recovered/Resolved]

NARRATIVE: CASE EVENT DATE: 201404
